FAERS Safety Report 14058203 (Version 18)
Quarter: 2019Q3

REPORT INFORMATION
  Report Type: Spontaneous
  Country: US (occurrence: US)
  Receive Date: 20171006
  Receipt Date: 20190712
  Transmission Date: 20191004
  Serious: Yes (Death, Hospitalization)
  Sender: FDA-Public Use
  Company Number: US-ACTELION-A-NJ2017-160702

PATIENT
  Age: 40 Year
  Sex: Female
  Weight: 52.61 kg

DRUGS (10)
  1. PREDNISONE. [Concomitant]
     Active Substance: PREDNISONE
     Dosage: 10 MG, UNK
  2. VELETRI [Suspect]
     Active Substance: EPOPROSTENOL
     Dosage: 30 NG/KG, PER MIN
     Route: 042
  3. VELETRI [Suspect]
     Active Substance: EPOPROSTENOL
     Dosage: UNK
     Route: 042
  4. VELETRI [Suspect]
     Active Substance: EPOPROSTENOL
     Indication: PULMONARY HYPERTENSION
     Dosage: 40 NG/KG, PER MIN
     Route: 042
  5. OXYCODONE [Concomitant]
     Active Substance: OXYCODONE
     Dosage: 5 MG, UNK
  6. PLAQUENIL [Concomitant]
     Active Substance: HYDROXYCHLOROQUINE SULFATE
     Dosage: 200 UNK, UNK
  7. REVATIO [Concomitant]
     Active Substance: SILDENAFIL CITRATE
     Dosage: 20 MG, TID
     Route: 048
  8. SILDENAFIL CITRATE. [Concomitant]
     Active Substance: SILDENAFIL CITRATE
  9. ALDACTONE [Concomitant]
     Active Substance: SPIRONOLACTONE
     Dosage: 50 MG, QD
  10. CARAFATE [Concomitant]
     Active Substance: SUCRALFATE
     Dosage: 1 G, UNK

REACTIONS (27)
  - Myositis [Unknown]
  - Arthralgia [Unknown]
  - Abdominal distension [Unknown]
  - Nasopharyngitis [Unknown]
  - Chest pain [Unknown]
  - Muscle spasms [Unknown]
  - Right ventricular failure [Fatal]
  - Dyspnoea [Unknown]
  - Costochondritis [Unknown]
  - Sinus congestion [Unknown]
  - Fall [Unknown]
  - Musculoskeletal chest pain [Unknown]
  - Condition aggravated [Unknown]
  - Brain natriuretic peptide abnormal [Unknown]
  - Rhinorrhoea [Unknown]
  - Joint swelling [Unknown]
  - Back pain [Unknown]
  - Headache [Unknown]
  - Paranasal sinus discomfort [Unknown]
  - Cardiac disorder [Unknown]
  - Suture insertion [Unknown]
  - Nausea [Unknown]
  - Paracentesis [Unknown]
  - Pulmonary arterial hypertension [Unknown]
  - Myalgia [Unknown]
  - Pain in jaw [Unknown]
  - Balance disorder [Unknown]

NARRATIVE: CASE EVENT DATE: 201807
